FAERS Safety Report 8617164-6 (Version None)
Quarter: 2012Q3

REPORT INFORMATION
  Report Type: 
  Country: None (occurrence: None)
  Receive Date: 20120823
  Receipt Date: 20120823
  Transmission Date: 20120928
  Serious: No
  Sender: FDA-Public Use
  Company Number: US-009507513-1207USA012406

PATIENT

DRUGS (6)
  1. CYCLOBENZAPRINE HCL [Suspect]
  2. RELAFEN [Suspect]
  3. INDOMETHACIN [Suspect]
     Route: 048
  4. ANTIMICROBIAL (UNSPECIFIED) [Concomitant]
  5. ANDROGEL [Suspect]
     Dosage: 2 PUMPS PER DAY
  6. SYMBICORT [Suspect]

REACTIONS (6)
  - HYPERHIDROSIS [None]
  - INJURY [None]
  - BLOOD TESTOSTERONE DECREASED [None]
  - NECK PAIN [None]
  - DRUG INEFFECTIVE [None]
  - BACK PAIN [None]
